FAERS Safety Report 5664731-8 (Version None)
Quarter: 2008Q1

REPORT INFORMATION
  Report Type: 
  Country: None (occurrence: None)
  Receive Date: 20080314
  Receipt Date: 20080303
  Transmission Date: 20080703
  Serious: Yes (Life-Threatening)
  Sender: FDA-Public Use
  Company Number: PL-BAXTER-2008BH001999

PATIENT
  Age: 68 Year
  Sex: Male
  Weight: 90 kg

DRUGS (2)
  1. RINGERS INJECTION IN PLASTIC CONTAINER [Suspect]
     Indication: HYPOKALAEMIA
     Route: 042
     Dates: start: 20080303, end: 20080303
  2. POTASSIUM CHLORIDE [Suspect]
     Indication: HYPOKALAEMIA
     Route: 042
     Dates: start: 20080303, end: 20080303

REACTIONS (3)
  - BLOOD PRESSURE INCREASED [None]
  - CHILLS [None]
  - PYREXIA [None]
